FAERS Safety Report 8983731 (Version 2)
Quarter: 2012Q4

REPORT INFORMATION
  Report Type: Report from Study
  Country: CA (occurrence: CA)
  Receive Date: 20121224
  Receipt Date: 20121226
  Transmission Date: 20130627
  Serious: Yes (Hospitalization, Other)
  Sender: FDA-Public Use
  Company Number: CA-ROCHE-1041091

PATIENT
  Age: 50 Year
  Sex: Male
  Weight: 106.05 kg

DRUGS (11)
  1. TOCILIZUMAB [Suspect]
     Indication: RHEUMATOID ARTHRITIS
     Route: 042
     Dates: start: 20111102, end: 20121212
  2. TOCILIZUMAB [Suspect]
     Route: 065
     Dates: start: 20111201
  3. TOCILIZUMAB [Suspect]
     Route: 065
     Dates: start: 20111221
  4. TOCILIZUMAB [Suspect]
     Route: 065
     Dates: start: 20120215
  5. TOCILIZUMAB [Suspect]
     Route: 065
     Dates: start: 20120307
  6. VOLTAREN SR [Concomitant]
     Indication: RHEUMATOID ARTHRITIS
     Route: 048
     Dates: start: 1995
  7. METHOTREXATE [Concomitant]
     Indication: RHEUMATOID ARTHRITIS
     Route: 048
     Dates: start: 20050720
  8. FOLIC ACID [Concomitant]
     Route: 048
     Dates: start: 20050720
  9. SYNTHROID [Concomitant]
     Indication: HYPOTHYROIDISM
     Route: 048
     Dates: start: 20110411
  10. PREDNISONE [Concomitant]
     Route: 048
     Dates: start: 20120201
  11. TYLENOL #1 (CANADA) [Concomitant]

REACTIONS (9)
  - Cellulitis [Recovering/Resolving]
  - Dyspnoea [Recovering/Resolving]
  - Lymphoma [Unknown]
  - Diverticulitis [Recovered/Resolved]
  - Abdominal pain [Not Recovered/Not Resolved]
  - Nasopharyngitis [Recovered/Resolved]
  - Cough [Recovered/Resolved]
  - Weight decreased [Unknown]
  - Local swelling [Unknown]
